FAERS Safety Report 18225704 (Version 1)
Quarter: 2020Q3

REPORT INFORMATION
  Report Type: Spontaneous
  Country: GB (occurrence: GB)
  Receive Date: 20200903
  Receipt Date: 20200903
  Transmission Date: 20201103
  Serious: Yes (Other)
  Sender: FDA-Public Use
  Company Number: GB-BAXTER-2020BAX017656

PATIENT
  Age: 36 Year
  Sex: Female
  Weight: 89 kg

DRUGS (14)
  1. SODIUM CHLORIDE. [Suspect]
     Active Substance: SODIUM CHLORIDE
     Indication: MEDICATION DILUTION
     Dosage: IN CISPLATIN
     Route: 065
     Dates: start: 20200824, end: 20200824
  2. ONDANSETRON 2MG/ML SOLUTION FOR INJECTION [Suspect]
     Active Substance: ONDANSETRON
     Indication: SUPPORTIVE CARE
     Dosage: BD FOR 3 DAYS
     Route: 065
     Dates: start: 20200824, end: 20200826
  3. APREPITANT. [Suspect]
     Active Substance: APREPITANT
     Indication: SUPPORTIVE CARE
     Dosage: D1
     Route: 065
     Dates: start: 20200824
  4. METFORMIN [Suspect]
     Active Substance: METFORMIN HYDROCHLORIDE
     Indication: DIABETES MELLITUS
     Route: 065
     Dates: start: 20200824
  5. APREPITANT. [Suspect]
     Active Substance: APREPITANT
     Dosage: D3
     Route: 065
     Dates: start: 20200826, end: 20200826
  6. DEXAMETHASONE. [Suspect]
     Active Substance: DEXAMETHASONE
     Indication: SUPPORTIVE CARE
     Dosage: BD FOR 3 DAYS
     Route: 065
     Dates: start: 20200824, end: 20200826
  7. ETOPOSIDE. [Suspect]
     Active Substance: ETOPOSIDE
     Indication: NEOPLASM RECURRENCE
     Route: 042
     Dates: start: 20200824, end: 20200824
  8. SODIUM CHLORIDE INTRAVENOUS INFUSION BP 0.9% W/V [Suspect]
     Active Substance: SODIUM CHLORIDE
     Indication: MEDICATION DILUTION
     Dosage: IN ETOPOSIDE
     Route: 042
     Dates: start: 20200824, end: 20200824
  9. DALTEPARIN [Suspect]
     Active Substance: DALTEPARIN
     Indication: PRODUCT USED FOR UNKNOWN INDICATION
     Route: 065
     Dates: start: 20200824
  10. CISPLATIN. [Suspect]
     Active Substance: CISPLATIN
     Indication: GERM CELL NEOPLASM
     Dosage: IN SODIUM CHLORIDE 0.9%
     Route: 065
     Dates: start: 20200824, end: 20200824
  11. ETOPOSIDE. [Suspect]
     Active Substance: ETOPOSIDE
     Indication: GERM CELL NEOPLASM
     Route: 065
  12. APREPITANT. [Suspect]
     Active Substance: APREPITANT
     Dosage: D2
     Route: 065
     Dates: start: 20200825
  13. DOMPERIDONE [Suspect]
     Active Substance: DOMPERIDONE
     Indication: SUPPORTIVE CARE
     Dosage: PRN
     Route: 065
     Dates: start: 20200824
  14. CISPLATIN. [Suspect]
     Active Substance: CISPLATIN
     Indication: NEOPLASM RECURRENCE

REACTIONS (1)
  - Anaphylactic reaction [Recovered/Resolved]

NARRATIVE: CASE EVENT DATE: 20200824
